FAERS Safety Report 7970710-8 (Version None)
Quarter: 2011Q4

REPORT INFORMATION
  Report Type: 
  Country: None (occurrence: None)
  Receive Date: 20111212
  Receipt Date: 20111201
  Transmission Date: 20120403
  Serious: Yes (Life-Threatening, Hospitalization)
  Sender: FDA-Public Use
  Company Number: US-CELGENEUS-163-21880-11120354

PATIENT
  Sex: Male
  Weight: 70.824 kg

DRUGS (4)
  1. DIOVAN [Concomitant]
     Dosage: 80 MILLIGRAM
     Route: 065
  2. EXJADE [Concomitant]
     Dosage: 1500 MILLIGRAM
     Route: 065
  3. REVLIMID [Suspect]
     Dosage: 5 MILLIGRAM
     Route: 048
     Dates: start: 20111111
  4. LASIX [Concomitant]
     Dosage: 40 MILLIGRAM
     Route: 065

REACTIONS (2)
  - MYOCARDIAL INFARCTION [None]
  - ATRIAL FIBRILLATION [None]
